FAERS Safety Report 17805303 (Version 1)
Quarter: 2020Q2

REPORT INFORMATION
  Report Type: Spontaneous
  Country: US (occurrence: US)
  Receive Date: 20200520
  Receipt Date: 20200520
  Transmission Date: 20200714
  Serious: Yes (Hospitalization)
  Sender: FDA-Public Use
  Company Number: US-BIOGEN-2020BI00875279

PATIENT
  Sex: Male

DRUGS (2)
  1. SPINRAZA [Suspect]
     Active Substance: NUSINERSEN
     Dosage: MAINTENANCE DOSING EVERY 120 DAYS FOLLOWING COMPLETION OF THE LOADING PHASE
     Route: 037
  2. SPINRAZA [Suspect]
     Active Substance: NUSINERSEN
     Indication: SPINAL MUSCULAR ATROPHY
     Dosage: 4 LOADING DOSES OF 12MG INTRATHECAL NUSINERSEN (DAY 1, 15, 30, 60)
     Route: 037

REACTIONS (5)
  - Mobility decreased [Unknown]
  - Fractured sacrum [Unknown]
  - Therapeutic response shortened [Unknown]
  - Fatigue [Unknown]
  - Fall [Recovered/Resolved]
